FAERS Safety Report 9523276 (Version 1)
Quarter: 2013Q3

REPORT INFORMATION
  Report Type: Spontaneous
  Country: CH (occurrence: CH)
  Receive Date: 20130913
  Receipt Date: 20130913
  Transmission Date: 20140515
  Serious: Yes (Other)
  Sender: FDA-Public Use
  Company Number: PHHY2013CH100219

PATIENT
  Age: 46 Year
  Sex: Male

DRUGS (5)
  1. LEPONEX [Suspect]
     Indication: SCHIZOPHRENIA
     Route: 048
     Dates: start: 20130522
  2. LEPONEX [Suspect]
     Dosage: DOSE REDUCED
  3. LITHIOFOR [Suspect]
     Route: 048
     Dates: start: 20130607, end: 20130630
  4. FERRUM HAUSMANN [Suspect]
     Dosage: 100 MG, UNK
     Route: 048
     Dates: start: 20130606
  5. VITAMIN D3 STREULI [Concomitant]
     Dosage: 400 IU, UNK
     Route: 048
     Dates: start: 20130606

REACTIONS (3)
  - Asthenia [Recovered/Resolved]
  - Tremor [Recovered/Resolved]
  - Diarrhoea [Recovered/Resolved]
